FAERS Safety Report 7908221-8 (Version None)
Quarter: 2011Q4

REPORT INFORMATION
  Report Type: 
  Country: None (occurrence: None)
  Receive Date: 20111111
  Receipt Date: 20111103
  Transmission Date: 20120403
  Serious: No
  Sender: FDA-Public Use
  Company Number: US-BIOGENIDEC-2011BI042302

PATIENT
  Age: 69 Year
  Sex: Female

DRUGS (4)
  1. AVONEX [Concomitant]
     Indication: MULTIPLE SCLEROSIS
     Route: 030
     Dates: start: 19960901, end: 20021101
  2. IRON [Concomitant]
     Indication: IRON DEFICIENCY
     Dates: start: 20090101
  3. TYSABRI [Suspect]
     Indication: MULTIPLE SCLEROSIS
     Route: 042
     Dates: start: 20061101, end: 20091001
  4. BACLOFEN [Concomitant]
     Indication: MUSCLE SPASMS

REACTIONS (2)
  - IRON DEFICIENCY [None]
  - ALOPECIA [None]
